FAERS Safety Report 8228430-0 (Version None)
Quarter: 2012Q1

REPORT INFORMATION
  Report Type: 
  Country: None (occurrence: None)
  Receive Date: 20120322
  Receipt Date: 20120223
  Transmission Date: 20120608
  Serious: No
  Sender: FDA-Public Use
  Company Number: US-BAUSCH-2012BL001314

PATIENT
  Age: 60 Year
  Sex: Female

DRUGS (38)
  1. BROMDAY [Suspect]
     Route: 047
     Dates: start: 20111220, end: 20120126
  2. CYMBALTA [Concomitant]
     Route: 048
  3. PHENAGRAN [Concomitant]
     Route: 048
  4. CLARINEX /USA/ [Concomitant]
     Route: 048
  5. VEGETABLE LAXATIVE [Concomitant]
     Route: 048
  6. CITRUCEL [Concomitant]
     Route: 048
  7. SIMVASTATIN [Concomitant]
     Route: 048
  8. BESIVANCE [Suspect]
     Indication: OFF LABEL USE
     Route: 047
     Dates: start: 20111216, end: 20120121
  9. BROMDAY [Suspect]
     Indication: POSTOPERATIVE CARE
     Route: 047
     Dates: start: 20111216, end: 20120121
  10. DUREZOL [Suspect]
     Indication: PREOPERATIVE CARE
     Route: 047
     Dates: start: 20111216, end: 20120121
  11. MULTI-VITAMINS [Concomitant]
     Route: 048
  12. STOOL SOFTENER [Concomitant]
     Route: 048
  13. BESIVANCE [Suspect]
     Indication: PREOPERATIVE CARE
     Route: 047
     Dates: start: 20111216, end: 20120121
  14. BESIVANCE [Suspect]
     Indication: POSTOPERATIVE CARE
     Route: 047
     Dates: start: 20111216, end: 20120121
  15. BESIVANCE [Suspect]
     Route: 047
     Dates: start: 20111220, end: 20120126
  16. BROMDAY [Suspect]
     Route: 047
     Dates: start: 20111220, end: 20120126
  17. DUREZOL [Suspect]
     Route: 047
     Dates: start: 20111220, end: 20120126
  18. NEXIUM [Concomitant]
     Route: 048
  19. VITAMIN D [Concomitant]
     Route: 048
  20. MELATONIN [Concomitant]
     Route: 048
  21. PROPYLENE GLYCOL [Concomitant]
     Route: 047
  22. BESIVANCE [Suspect]
     Route: 047
     Dates: start: 20111220, end: 20120126
  23. BESIVANCE [Suspect]
     Route: 047
     Dates: start: 20111220, end: 20120126
  24. NEURONTIN [Concomitant]
     Route: 048
  25. VITAMIN E [Concomitant]
     Route: 048
  26. CALCIUM CARBONATE [Concomitant]
     Route: 048
  27. GINGER ROOT [Concomitant]
     Route: 048
  28. ATENOLOL [Concomitant]
     Route: 048
  29. FOLIC ACID [Concomitant]
     Route: 048
  30. KLONOPAN [Concomitant]
     Route: 048
  31. ONDASETRON HYDROCHLORIDE [Concomitant]
     Route: 048
  32. VITAMIN B COMPLEX CAP [Concomitant]
     Route: 048
  33. VITAMIN B-12 [Concomitant]
     Route: 048
  34. BROMDAY [Suspect]
     Indication: PREOPERATIVE CARE
     Route: 047
     Dates: start: 20111216, end: 20120121
  35. DUREZOL [Suspect]
     Indication: POSTOPERATIVE CARE
     Route: 047
     Dates: start: 20111216, end: 20120121
  36. DUREZOL [Suspect]
     Route: 047
     Dates: start: 20111220, end: 20120126
  37. REMERON [Concomitant]
     Route: 048
  38. MIRALAX [Concomitant]
     Route: 048

REACTIONS (1)
  - NAUSEA [None]
